FAERS Safety Report 9149017 (Version 2)
Quarter: 2013Q1

REPORT INFORMATION
  Report Type: Spontaneous
  Country: JP (occurrence: JP)
  Receive Date: 20130308
  Receipt Date: 20130319
  Transmission Date: 20140127
  Serious: No
  Sender: FDA-Public Use
  Company Number: JP-NOVOPROD-318235

PATIENT
  Age: 59 Year
  Sex: Male

DRUGS (2)
  1. INNOLET R CHU [Suspect]
     Indication: TYPE 2 DIABETES MELLITUS
     Dosage: 72 IU, QD
     Route: 058
     Dates: start: 200901
  2. INNOLET [Suspect]
     Indication: TYPE 2 DIABETES MELLITUS
     Dosage: 58 IU, QD
     Route: 058
     Dates: start: 200901

REACTIONS (5)
  - Amyloidosis [Unknown]
  - Diabetic gangrene [None]
  - Injection site reaction [None]
  - Needle issue [None]
  - Wrong technique in drug usage process [None]
